FAERS Safety Report 14647056 (Version 1)
Quarter: 2018Q1

REPORT INFORMATION
  Report Type: Spontaneous
  Country: US (occurrence: US)
  Receive Date: 20180315
  Receipt Date: 20180315
  Transmission Date: 20180509
  Serious: No
  Sender: FDA-Public Use
  Company Number: None

PATIENT
  Age: 62 Year
  Sex: Female

DRUGS (4)
  1. TIMOLOL OPTHALMIC SOLN [Concomitant]
  2. GLUCOPHAGE 500MG [Concomitant]
  3. LOSARTAN. [Suspect]
     Active Substance: LOSARTAN
     Indication: BLOOD PRESSURE MEASUREMENT
     Route: 048
  4. TENORMIN 25MG TAB [Concomitant]

REACTIONS (3)
  - Hypersensitivity [None]
  - Flushing [None]
  - Erythema [None]

NARRATIVE: CASE EVENT DATE: 20180315
